FAERS Safety Report 20694859 (Version 1)
Quarter: 2022Q2

REPORT INFORMATION
  Report Type: Spontaneous
  Country: FR (occurrence: FR)
  Receive Date: 20220411
  Receipt Date: 20220411
  Transmission Date: 20220721
  Serious: Yes (Death, Other)
  Sender: FDA-Public Use
  Company Number: None

PATIENT
  Age: 99 Year
  Sex: Female
  Weight: 73 kg

DRUGS (5)
  1. LOVENOX [Suspect]
     Active Substance: ENOXAPARIN SODIUM
     Indication: Atrial fibrillation
     Dosage: 7000 IU, QOD
     Route: 042
     Dates: start: 20220211
  2. RITONAVIR [Concomitant]
     Active Substance: RITONAVIR
     Indication: COVID-19 treatment
     Dosage: 1 TABLET OF PF-07321332 150MG WITH - 1 TABLET OF RITONAVIR 100MG
     Route: 048
     Dates: start: 20220211, end: 20220214
  3. BISOPROLOL FUMARATE [Concomitant]
     Active Substance: BISOPROLOL FUMARATE
  4. FLUTICASONE FUROATE\VILANTEROL TRIFENATATE [Concomitant]
     Active Substance: FLUTICASONE FUROATE\VILANTEROL TRIFENATATE
  5. FUROSEMIDE [Concomitant]
     Active Substance: FUROSEMIDE

REACTIONS (1)
  - Intra-abdominal haematoma [Fatal]

NARRATIVE: CASE EVENT DATE: 20220214
